FAERS Safety Report 24203693 (Version 1)
Quarter: 2024Q3

REPORT INFORMATION
  Report Type: Spontaneous
  Country: GB (occurrence: GB)
  Receive Date: 20240813
  Receipt Date: 20240813
  Transmission Date: 20241017
  Serious: Yes (Other)
  Sender: ACCORD
  Company Number: None

PATIENT
  Age: 72 Year
  Sex: Female
  Weight: 53 kg

DRUGS (2)
  1. ATORVASTATIN [Suspect]
     Active Substance: ATORVASTATIN
     Indication: Blood cholesterol increased
     Dosage: 5MG
     Dates: start: 20231210, end: 20240524
  2. VITAMIN D [Concomitant]
     Active Substance: VITAMIN D NOS
     Indication: Adverse drug reaction
     Dates: start: 2013

REACTIONS (1)
  - Taste disorder [Recovered/Resolved]

NARRATIVE: CASE EVENT DATE: 20240423
